FAERS Safety Report 11464529 (Version 1)
Quarter: 2015Q3

REPORT INFORMATION
  Report Type: Spontaneous
  Country: US (occurrence: US)
  Receive Date: 20150831
  Receipt Date: 20150831
  Transmission Date: 20151125
  Serious: No
  Sender: FDA-Public Use
  Company Number: US-ELI_LILLY_AND_COMPANY-US201107000062

PATIENT
  Sex: Female

DRUGS (5)
  1. CYMBALTA [Suspect]
     Active Substance: DULOXETINE HYDROCHLORIDE
     Indication: STRESS
     Dosage: 60 MG, QD
     Dates: end: 2010
  2. CYMBALTA [Suspect]
     Active Substance: DULOXETINE HYDROCHLORIDE
     Dosage: 60 MG, QD
     Dates: end: 201106
  3. LISINOPRIL. [Concomitant]
     Active Substance: LISINOPRIL
  4. BAYER ASPIRIN [Concomitant]
     Active Substance: ASPIRIN
  5. INSULIN [Concomitant]
     Active Substance: INSULIN NOS

REACTIONS (4)
  - Asthenia [Not Recovered/Not Resolved]
  - Drug withdrawal syndrome [Not Recovered/Not Resolved]
  - Headache [Not Recovered/Not Resolved]
  - Off label use [Unknown]
